FAERS Safety Report 20986500 (Version 1)
Quarter: 2022Q2

REPORT INFORMATION
  Report Type: Spontaneous
  Country: GB (occurrence: GB)
  Receive Date: 20220621
  Receipt Date: 20220621
  Transmission Date: 20220721
  Serious: Yes (Congenital Anomaly, Other)
  Sender: FDA-Public Use
  Company Number: GB-NOVARTISPH-NVSC2022GB136989

PATIENT

DRUGS (9)
  1. ONDANSETRON [Suspect]
     Active Substance: ONDANSETRON
     Indication: Foetal exposure during pregnancy
     Dosage: MATERNAL DOSE: 8 MG, QD (INJECTION)
     Route: 064
     Dates: start: 20080112, end: 20080114
  2. ONDANSETRON [Suspect]
     Active Substance: ONDANSETRON
     Dosage: MATERNAL DOSE: 4 MG, QD (PARENT ROUTE IS IV/IM/ORAL)
     Route: 064
     Dates: start: 20080114
  3. ONDANSETRON [Suspect]
     Active Substance: ONDANSETRON
     Dosage: MATERNAL DOSE: 12 MG, QD (INJECTION)
     Route: 064
     Dates: start: 20080114
  4. CYCLIZINE [Concomitant]
     Active Substance: CYCLIZINE
     Indication: Foetal exposure during pregnancy
     Dosage: MATERNAL DOSE: 150 MG, QD (50 MILLIGRAM, TID (PARENT ROUTE IV/IM/ORAL ROUTE))
     Route: 064
     Dates: start: 20080109, end: 20080114
  5. FOLIC ACID [Concomitant]
     Active Substance: FOLIC ACID
     Indication: Foetal exposure during pregnancy
     Dosage: MATERNAL DOSE: 5 MG, QD (MORNING)
     Route: 064
     Dates: start: 200801
  6. METOCLOPRAMIDE [Concomitant]
     Active Substance: METOCLOPRAMIDE
     Indication: Foetal exposure during pregnancy
     Dosage: MATERNAL DOSE: 30 MG, QD (10 MILLIGRAM, TID (PARENT ROUTEIV/IM/ORAL)
     Route: 064
     Dates: start: 20080109, end: 20080115
  7. METOCLOPRAMIDE [Concomitant]
     Active Substance: METOCLOPRAMIDE
     Dosage: MATERNAL DOSE: 30 MG, QD (10 MILLIGRAM, TID (PARENT ROUTEIV/IM/ORAL)
     Route: 064
     Dates: start: 20080116
  8. PROMETHAZINE [Concomitant]
     Active Substance: PROMETHAZINE HYDROCHLORIDE
     Indication: Foetal exposure during pregnancy
     Dosage: MATERNAL DOSE: 75 MG, QD (25 MG, TID)
     Route: 064
     Dates: start: 20080109, end: 20080110
  9. THIAMINE [Concomitant]
     Active Substance: THIAMINE
     Indication: Foetal exposure during pregnancy
     Dosage: MATERNAL DOSE: 25 MG, QD
     Route: 064
     Dates: start: 20080114

REACTIONS (7)
  - Spinal deformity [Unknown]
  - Gastroschisis [Unknown]
  - Foetal growth restriction [Unknown]
  - Heart disease congenital [Unknown]
  - Foetal malformation [Unknown]
  - Maternal drugs affecting foetus [Unknown]
  - Foetal exposure during pregnancy [Unknown]

NARRATIVE: CASE EVENT DATE: 20080101
